FAERS Safety Report 10481775 (Version 1)
Quarter: 2014Q3

REPORT INFORMATION
  Report Type: Spontaneous
  Country: FR (occurrence: FR)
  Receive Date: 20140929
  Receipt Date: 20140929
  Transmission Date: 20150326
  Serious: Yes (Hospitalization)
  Sender: FDA-Public Use
  Company Number: FR-PFIZER INC-2014264386

PATIENT
  Age: 41 Year
  Sex: Female

DRUGS (30)
  1. ARACYTINE [Suspect]
     Active Substance: CYTARABINE
     Indication: ACUTE BIPHENOTYPIC LEUKAEMIA
     Dosage: 3500 MG, 2X/DAY
     Dates: start: 20140627, end: 20140630
  2. ENDOXAN [Suspect]
     Active Substance: CYCLOPHOSPHAMIDE
     Indication: ACUTE BIPHENOTYPIC LEUKAEMIA
     Dosage: 520 MG, 1X/DAY
     Route: 041
     Dates: start: 20140607, end: 20140609
  3. CYTARABINE EG [Suspect]
     Active Substance: CYTARABINE
     Indication: ACUTE BIPHENOTYPIC LEUKAEMIA
     Dosage: 40 MG, SINGLE
     Route: 037
     Dates: start: 20140620, end: 20140620
  4. METHYLPREDNISOLONE MYLAN [Suspect]
     Active Substance: METHYLPREDNISOLONE
     Dosage: 40 MG, SINGLE
     Route: 037
     Dates: start: 20140704, end: 20140704
  5. IDARUBICIN MYLAN [Suspect]
     Active Substance: IDARUBICIN
     Indication: ACUTE BIPHENOTYPIC LEUKAEMIA
     Dosage: 21 MG, 1X/DAY
     Route: 041
     Dates: start: 20140627, end: 20140629
  6. AUGMENTIN [Suspect]
     Active Substance: AMOXICILLIN\CLAVULANATE POTASSIUM
     Indication: RAOULTELLA ORNITHINOLYTICA INFECTION
     Dosage: 1 G, 3X/DAY
     Route: 048
     Dates: start: 20140623, end: 20140630
  7. EXACYL [Suspect]
     Active Substance: TRANEXAMIC ACID
     Dosage: 1 G, 3X/DAY
     Route: 048
     Dates: start: 201405
  8. CYTARABINE EG [Suspect]
     Active Substance: CYTARABINE
     Dosage: 40 MG, SINGLE
     Route: 037
     Dates: start: 20140704, end: 20140704
  9. AUGMENTIN [Suspect]
     Active Substance: AMOXICILLIN\CLAVULANATE POTASSIUM
     Indication: CYSTITIS
  10. ZELITREX [Suspect]
     Active Substance: VALACYCLOVIR HYDROCHLORIDE
     Indication: PROPHYLAXIS
     Dosage: 500 MG, 2X/DAY
     Route: 048
     Dates: start: 20140607, end: 20140706
  11. DEXAMETHASONE MYLAN [Suspect]
     Active Substance: DEXAMETHASONE
     Indication: ACUTE BIPHENOTYPIC LEUKAEMIA
     Dosage: 20 MG, 2X/DAY
     Route: 041
     Dates: start: 20140607, end: 20140610
  12. DEXAMETHASONE MYLAN [Suspect]
     Active Substance: DEXAMETHASONE
     Dosage: 20 MG, 2X/DAY
     Route: 041
     Dates: start: 20140617, end: 20140620
  13. METHOTREXATE BIODIM [Suspect]
     Active Substance: METHOTREXATE
     Dosage: 15 MG, SINGLE
     Route: 037
     Dates: start: 20140704, end: 20140704
  14. ROCEPHINE [Suspect]
     Active Substance: CEFTRIAXONE SODIUM
     Dosage: 1 G, 1X/DAY
     Route: 041
     Dates: start: 20100702, end: 20140713
  15. METHOTREXATE BIODIM [Suspect]
     Active Substance: METHOTREXATE
     Indication: ACUTE BIPHENOTYPIC LEUKAEMIA
     Dosage: 15 MG, SINGLE
     Route: 037
     Dates: start: 20140616, end: 20140616
  16. METHOTREXATE BIODIM [Suspect]
     Active Substance: METHOTREXATE
     Dosage: 15 MG, SINGLE
     Route: 037
     Dates: start: 20140708, end: 20140708
  17. INEXIUM /01479302/ [Concomitant]
     Active Substance: ESOMEPRAZOLE MAGNESIUM
     Dosage: 40 MG, 1X/DAY
     Route: 048
  18. CYTARABINE EG [Suspect]
     Active Substance: CYTARABINE
     Dosage: 40 MG, SINGLE
     Route: 037
     Dates: start: 20140708, end: 20140708
  19. METHYLPREDNISOLONE MYLAN [Suspect]
     Active Substance: METHYLPREDNISOLONE
     Indication: ACUTE BIPHENOTYPIC LEUKAEMIA
     Dosage: 40 MG, SINGLE
     Route: 037
     Dates: start: 20140616, end: 20140616
  20. METHYLPREDNISOLONE MYLAN [Suspect]
     Active Substance: METHYLPREDNISOLONE
     Dosage: 40 MG, SINGLE
     Route: 037
     Dates: start: 20140620, end: 20140620
  21. PENTACARINAT [Suspect]
     Active Substance: PENTAMIDINE ISETHIONATE
     Dosage: UNK
     Route: 045
     Dates: start: 20140706, end: 20140706
  22. TAZOCILLINE [Suspect]
     Active Substance: PIPERACILLIN SODIUM\TAZOBACTAM SODIUM
     Dosage: 1 DF, 4X/DAY
     Route: 041
     Dates: start: 20140615, end: 20140721
  23. VINCRISTINE TEVA [Suspect]
     Active Substance: VINCRISTINE
     Indication: ACUTE BIPHENOTYPIC LEUKAEMIA
     Dosage: 2 MG, 1X/DAY
     Route: 041
     Dates: start: 20140610, end: 20140617
  24. UROMITEXAN [Suspect]
     Active Substance: MESNA
     Dosage: 200 MG, 3X/DAY
     Route: 041
     Dates: start: 20140607, end: 20140608
  25. LUTERAN [Suspect]
     Active Substance: CHLORMADINONE ACETATE
     Dosage: UNK
     Route: 048
     Dates: start: 201405
  26. DEPAKINE CHRONO [Concomitant]
     Active Substance: VALPROATE SODIUM
     Dosage: 500 MG, 1X/DAY
     Route: 048
  27. AMLOR [Suspect]
     Active Substance: AMLODIPINE BESYLATE
     Dosage: 5 MG, 2X/DAY
     Route: 048
     Dates: start: 20140705
  28. METHYLPREDNISOLONE MYLAN [Suspect]
     Active Substance: METHYLPREDNISOLONE
     Dosage: 40 MG, SINGLE
     Route: 037
     Dates: start: 20140708, end: 20140708
  29. NOXAFIL [Suspect]
     Active Substance: POSACONAZOLE
     Indication: PROPHYLAXIS
     Dosage: 200 MG, 3X/DAY
     Route: 048
     Dates: start: 20140607, end: 20140706
  30. PENTACARINAT [Suspect]
     Active Substance: PENTAMIDINE ISETHIONATE
     Indication: PROPHYLAXIS
     Dosage: UNK
     Route: 045
     Dates: start: 20140606, end: 20140606

REACTIONS (2)
  - Balance disorder [Recovering/Resolving]
  - Axonal neuropathy [Not Recovered/Not Resolved]

NARRATIVE: CASE EVENT DATE: 20140715
